FAERS Safety Report 7725422-2 (Version None)
Quarter: 2011Q3

REPORT INFORMATION
  Report Type: 
  Country: None (occurrence: None)
  Receive Date: 20110830
  Receipt Date: 20110727
  Transmission Date: 20111222
  Serious: Yes (Other)
  Sender: FDA-Public Use
  Company Number: TOR 2011-0045

PATIENT
  Age: 57 Year
  Sex: Female

DRUGS (3)
  1. ETIZOLAM [Concomitant]
  2. RISEDRONATE SODIUM [Concomitant]
  3. FARESTON [Suspect]
     Indication: BREAST CANCER
     Dosage: 40 MG
     Route: 048
     Dates: start: 20110709, end: 20110722

REACTIONS (1)
  - DEEP VEIN THROMBOSIS [None]
